FAERS Safety Report 10150981 (Version 3)
Quarter: 2014Q4

REPORT INFORMATION
  Report Type: Spontaneous
  Country: US (occurrence: US)
  Receive Date: 20140502
  Receipt Date: 20141231
  Transmission Date: 20150528
  Serious: Yes (Hospitalization)
  Sender: FDA-Public Use
  Company Number: US-BAYER-2014-064185

PATIENT
  Age: 21 Year
  Sex: Female
  Weight: 102.4 kg

DRUGS (1)
  1. MIRENA [Suspect]
     Active Substance: LEVONORGESTREL
     Indication: CONTRACEPTION
     Dosage: 20 MCG/24HR, CONT
     Route: 015
     Dates: start: 20101012, end: 20130404

REACTIONS (11)
  - Pain [None]
  - Psychogenic pain disorder [None]
  - Anhedonia [None]
  - Device issue [None]
  - Uterine perforation [None]
  - Injury [None]
  - Menorrhagia [None]
  - Off label use [None]
  - Infertility female [None]
  - Emotional distress [None]
  - Activities of daily living impaired [None]

NARRATIVE: CASE EVENT DATE: 201010
